FAERS Safety Report 8095464-9 (Version None)
Quarter: 2012Q1

REPORT INFORMATION
  Report Type: 
  Country: None (occurrence: None)
  Receive Date: 20120129
  Receipt Date: 20111228
  Transmission Date: 20120608
  Serious: No
  Sender: FDA-Public Use
  Company Number: US-ABBOTT-11P-163-0887659-00

PATIENT
  Age: 50 Year
  Sex: Female

DRUGS (4)
  1. ZOLOFT [Concomitant]
     Indication: ANXIETY
     Dosage: 50 MG DAILY
  2. HUMIRA [Suspect]
     Indication: PSORIASIS
     Dates: start: 20110921
  3. GABAPENTIN [Concomitant]
     Indication: FIBROMYALGIA
     Dosage: 600 MG BID
  4. MOBIC [Concomitant]
     Indication: OSTEOARTHRITIS
     Dosage: 7.5 MG DAILY

REACTIONS (2)
  - PSORIASIS [None]
  - CARPAL TUNNEL SYNDROME [None]
